FAERS Safety Report 9776120 (Version 2)
Quarter: 2013Q4

REPORT INFORMATION
  Report Type: Spontaneous
  Country: FR (occurrence: None)
  Receive Date: 20131218
  Receipt Date: 20131223
  Transmission Date: 20140711
  Serious: Yes (Hospitalization)
  Sender: FDA-Public Use
  Company Number: SYM-2013-13879

PATIENT
  Age: 42 Year
  Sex: Female

DRUGS (4)
  1. FLAGYL [Suspect]
     Indication: HELICOBACTER GASTRITIS
     Route: 048
     Dates: start: 20130613, end: 20130620
  2. LEVOFLOXACIN [Suspect]
     Indication: HELICOBACTER GASTRITIS
     Dosage: 1 UNIT(S)
     Route: 048
     Dates: start: 20130627, end: 20130628
  3. MOPRAL [Suspect]
     Indication: HELICOBACTER GASTRITIS
     Route: 048
     Dates: start: 20130613, end: 20130628
  4. AMOXICILLIN [Suspect]
     Indication: HELICOBACTER GASTRITIS
     Route: 048
     Dates: start: 20130613, end: 20130620

REACTIONS (2)
  - Urticaria [None]
  - Colitis [None]
